FAERS Safety Report 7754509-3 (Version None)
Quarter: 2011Q3

REPORT INFORMATION
  Report Type: 
  Country: None (occurrence: None)
  Receive Date: 20110915
  Receipt Date: 20110318
  Transmission Date: 20111222
  Serious: No
  Sender: FDA-Public Use
  Company Number: US-BAYER-2011-025416

PATIENT

DRUGS (1)
  1. MAGNEVIST [Suspect]
     Indication: ARTHROGRAM
     Dosage: 2.5 ML IN 250 BAG OF NS,INJECTION IN SHOULDER

REACTIONS (2)
  - EYE BURNS [None]
  - INCORRECT ROUTE OF DRUG ADMINISTRATION [None]
